FAERS Safety Report 5097271-8 (Version None)
Quarter: 2006Q3

REPORT INFORMATION
  Report Type: 
  Country: None (occurrence: None)
  Receive Date: 20060901
  Receipt Date: 20060822
  Transmission Date: 20061208
  Serious: Yes (Other)
  Sender: FDA-Public Use
  Company Number: 2005165652

PATIENT
  Age: 41 Year
  Sex: Female
  Weight: 70.3075 kg

DRUGS (9)
  1. DOSTINEX [Suspect]
     Indication: PITUITARY TUMOUR BENIGN
     Dates: start: 19900701
  2. PROVIGIL [Suspect]
     Indication: PITUITARY TUMOUR BENIGN
     Dosage: 200 MG (200 MG, 1 IN 1 D),ORAL
     Route: 048
     Dates: start: 20051001, end: 20051005
  3. PERCOCET [Concomitant]
  4. ACTONEL [Concomitant]
  5. CLIMARA [Concomitant]
  6. ZOLOFT [Concomitant]
  7. AMBIEN (ZOLPIEDM TARTRATE) [Concomitant]
  8. FLONASE [Concomitant]
  9. SINGULAIR [Concomitant]

REACTIONS (7)
  - HYPERTHERMIA [None]
  - HYPOTENSION [None]
  - LEUKOPENIA [None]
  - PETECHIAE [None]
  - SEROSITIS [None]
  - SYSTEMIC LUPUS ERYTHEMATOSUS [None]
  - THROMBOCYTOPENIA [None]
